FAERS Safety Report 16972253 (Version 1)
Quarter: 2019Q4

REPORT INFORMATION
  Report Type: Other
  Country: US (occurrence: US)
  Receive Date: 20191029
  Receipt Date: 20191029
  Transmission Date: 20200122
  Serious: Yes (Life-Threatening, Hospitalization)
  Sender: FDA-Public Use
  Company Number: US-STANDARD HOMEOPATHIC COMPANY-2076158

PATIENT
  Age: 79 Year
  Sex: Male
  Weight: 93.18 kg

DRUGS (1)
  1. HYLAND^S LEG CRAMPS CAPLETS [Suspect]
     Active Substance: HOMEOPATHICS
     Indication: MUSCULOSKELETAL STIFFNESS
     Route: 048
     Dates: start: 20191001, end: 20191001

REACTIONS (1)
  - Haemolytic anaemia [Unknown]

NARRATIVE: CASE EVENT DATE: 20191001
